FAERS Safety Report 10704152 (Version 1)
Quarter: 2015Q1

REPORT INFORMATION
  Report Type: Spontaneous
  Country: CA (occurrence: CA)
  Receive Date: 20150112
  Receipt Date: 20150112
  Transmission Date: 20150721
  Serious: Yes (Hospitalization, Disabling, Other)
  Sender: FDA-Public Use
  Company Number: CA-BAYER-2015-002839

PATIENT
  Age: 35 Year
  Sex: Female
  Weight: 66 kg

DRUGS (1)
  1. AVELOX [Suspect]
     Active Substance: MOXIFLOXACIN HYDROCHLORIDE
     Dosage: 1 DF, QD
     Route: 048

REACTIONS (5)
  - Burning sensation [Recovered/Resolved]
  - Weight bearing difficulty [Recovered/Resolved]
  - Joint range of motion decreased [Recovered/Resolved]
  - Tendon rupture [Recovered/Resolved]
  - Myalgia [Recovered/Resolved]
